FAERS Safety Report 7191186-7 (Version None)
Quarter: 2010Q4

REPORT INFORMATION
  Report Type: 
  Country: None (occurrence: None)
  Receive Date: 20101222
  Receipt Date: 20101222
  Transmission Date: 20110411
  Serious: Yes (Life-Threatening, Hospitalization)
  Sender: FDA-Public Use
  Company Number: None

PATIENT
  Age: 68 Year
  Sex: Female
  Weight: 56.7 kg

DRUGS (13)
  1. CETUXIMAB [Suspect]
     Indication: CELLULITIS
     Dosage: 400 MG/M2, LOADING, IV 250 MG/M2, IV
     Route: 042
     Dates: start: 20100721, end: 20101215
  2. CETUXIMAB [Suspect]
     Indication: CELLULITIS
     Dosage: 400 MG/M2, LOADING, IV 250 MG/M2, IV
     Route: 042
     Dates: start: 20100714
  3. CLONIDINE [Concomitant]
  4. PAXIL [Concomitant]
  5. SYNTHROID [Concomitant]
  6. OMEPRAZOLE [Concomitant]
  7. KLONOPIN [Concomitant]
  8. PERCOCET [Concomitant]
  9. FENTANYL [Concomitant]
  10. HYDROCHLOROTHIAZIDE [Concomitant]
  11. NYSTATIN [Concomitant]
  12. LORATADINE [Concomitant]
  13. MINOCYCLINE HCL [Concomitant]

REACTIONS (3)
  - CONFUSIONAL STATE [None]
  - MEMORY IMPAIRMENT [None]
  - MENTAL STATUS CHANGES [None]
